FAERS Safety Report 6394519-4 (Version None)
Quarter: 2009Q4

REPORT INFORMATION
  Report Type: 
  Country: None (occurrence: None)
  Receive Date: 20091009
  Receipt Date: 20090929
  Transmission Date: 20100525
  Serious: Yes (Hospitalization)
  Sender: FDA-Public Use
  Company Number: US-BAYER-200934709NA

PATIENT
  Age: 29 Year
  Sex: Female

DRUGS (3)
  1. YASMIN [Suspect]
     Indication: CONTRACEPTION
     Route: 048
     Dates: start: 20090401, end: 20090701
  2. YAZ [Suspect]
     Indication: CONTRACEPTION
     Route: 048
     Dates: start: 20090401, end: 20090701
  3. OCELLA [Suspect]
     Indication: CONTRACEPTION
     Route: 048
     Dates: start: 20090401, end: 20090701

REACTIONS (1)
  - CEREBROVASCULAR ACCIDENT [None]
